FAERS Safety Report 5719210-6 (Version None)
Quarter: 2008Q2

REPORT INFORMATION
  Report Type: 
  Country: None (occurrence: None)
  Receive Date: 20080428
  Receipt Date: 20080421
  Transmission Date: 20081010
  Serious: Yes (Hospitalization)
  Sender: FDA-Public Use
  Company Number: FR-ELI_LILLY_AND_COMPANY-FR200804005100

PATIENT
  Sex: Male

DRUGS (4)
  1. ZYPREXA [Suspect]
     Dosage: 30 MG, DAILY (1/D)
     Route: 048
     Dates: start: 20080227, end: 20080313
  2. TERCIAN [Concomitant]
     Dosage: 120 MG, DAILY (1/D)
     Route: 048
     Dates: start: 20080227, end: 20080317
  3. RISPERDAL [Concomitant]
     Dosage: 6 MG, DAILY (1/D)
     Route: 048
     Dates: start: 20080313, end: 20080317
  4. VALIUM [Concomitant]
     Dosage: 30 MG, DAILY (1/D)
     Route: 048
     Dates: start: 20080307

REACTIONS (3)
  - LEUKOPENIA [None]
  - NEUTROPENIA [None]
  - OVERDOSE [None]
